FAERS Safety Report 6120148-3 (Version None)
Quarter: 2009Q1

REPORT INFORMATION
  Report Type: 
  Country: None (occurrence: None)
  Receive Date: 20090316
  Receipt Date: 20090121
  Transmission Date: 20090719
  Serious: No
  Sender: FDA-Public Use
  Company Number: US-ABBOTT-09P-163-0499280-00

PATIENT

DRUGS (6)
  1. TRILIPIX 135MG [Suspect]
     Indication: BLOOD CHOLESTEROL INCREASED
     Route: 048
     Dates: start: 20090116, end: 20090120
  2. TRILIPIX 135MG [Suspect]
     Indication: HIGH DENSITY LIPOPROTEIN DECREASED
  3. TRILIPIX 135MG [Suspect]
     Indication: LOW DENSITY LIPOPROTEIN INCREASED
  4. LEVOXYL [Concomitant]
     Indication: DRUG USE FOR UNKNOWN INDICATION
  5. CLARITIN [Concomitant]
     Indication: DRUG USE FOR UNKNOWN INDICATION
  6. SINGULAIR [Concomitant]
     Indication: DRUG USE FOR UNKNOWN INDICATION

REACTIONS (3)
  - INSOMNIA [None]
  - PAIN [None]
  - PAIN IN EXTREMITY [None]
